FAERS Safety Report 8266927 (Version 2)
Quarter: 2013Q1

REPORT INFORMATION
  Report Type: Spontaneous
  Country: US (occurrence: US)
  Receive Date: 20111129
  Receipt Date: 20130218
  Transmission Date: 20140127
  Serious: Yes (Hospitalization, Other)
  Sender: FDA-Public Use
  Company Number: US-ROCHE-1015953

PATIENT
  Age: 15 Year
  Sex: Male
  Weight: 45.4 kg

DRUGS (3)
  1. ACCUTANE [Suspect]
     Indication: ACNE
     Route: 065
     Dates: start: 1985
  2. ACCUTANE [Suspect]
     Route: 065
     Dates: start: 19870420, end: 19870915
  3. ACCUTANE [Suspect]
     Route: 065
     Dates: start: 19880215, end: 19880824

REACTIONS (11)
  - Colitis ulcerative [Unknown]
  - Crohn^s disease [Unknown]
  - Inflammatory bowel disease [Unknown]
  - Depression [Unknown]
  - Injury [Unknown]
  - Anal fistula [Unknown]
  - Irritable bowel syndrome [Unknown]
  - Lip dry [Unknown]
  - Blood triglycerides increased [Unknown]
  - Dry eye [Unknown]
  - Dry skin [Unknown]
